FAERS Safety Report 22093395 (Version 1)
Quarter: 2023Q1

REPORT INFORMATION
  Report Type: Spontaneous
  Country: US (occurrence: US)
  Receive Date: 20230314
  Receipt Date: 20230314
  Transmission Date: 20230417
  Serious: Yes (Hospitalization)
  Sender: FDA-Public Use
  Company Number: US-CATALYSTPHARMACEUTICALPARTNERS-2021-49

PATIENT
  Age: 37 Year
  Sex: Female

DRUGS (1)
  1. RUZURGI [Suspect]
     Active Substance: AMIFAMPRIDINE
     Indication: Myasthenic syndrome
     Dosage: 20 MG, QID
     Route: 048
     Dates: start: 20191025

REACTIONS (3)
  - Pneumonia [Unknown]
  - Fluid retention [Unknown]
  - Cardiac failure [Unknown]

NARRATIVE: CASE EVENT DATE: 20210429
